FAERS Safety Report 18887211 (Version 3)
Quarter: 2021Q1

REPORT INFORMATION
  Report Type: Report from Study
  Country: US (occurrence: US)
  Receive Date: 20210212
  Receipt Date: 20210304
  Transmission Date: 20210420
  Serious: Yes (Death, Hospitalization, Other)
  Sender: FDA-Public Use
  Company Number: US-JNJFOC-20201239303

PATIENT
  Age: 62 Year
  Sex: Female
  Weight: 94.1 kg

DRUGS (3)
  1. MACITENTAN [Suspect]
     Active Substance: MACITENTAN
     Indication: PULMONARY ARTERIAL HYPERTENSION
     Route: 048
     Dates: start: 20170424
  2. REVATIO [Concomitant]
     Active Substance: SILDENAFIL CITRATE
  3. REMODULIN [Concomitant]
     Active Substance: TREPROSTINIL

REACTIONS (4)
  - Fluid overload [Unknown]
  - Renal impairment [Unknown]
  - Death [Fatal]
  - Fluid retention [Unknown]

NARRATIVE: CASE EVENT DATE: 20201215
